FAERS Safety Report 21988797 (Version 2)
Quarter: 2023Q1

REPORT INFORMATION
  Report Type: Report from Study
  Country: US (occurrence: US)
  Receive Date: 20230214
  Receipt Date: 20230312
  Transmission Date: 20230418
  Serious: Yes (Other)
  Sender: FDA-Public Use
  Company Number: US-002147023-NVSC2023US029124

PATIENT
  Sex: Male

DRUGS (1)
  1. ENTRESTO [Suspect]
     Active Substance: SACUBITRIL\VALSARTAN
     Indication: Product used for unknown indication
     Dosage: 1 DOSAGE FORM (24/26 MG)
     Route: 048

REACTIONS (10)
  - Atrial fibrillation [Unknown]
  - Dehydration [Unknown]
  - Infection [Unknown]
  - Gastrointestinal infection [Recovering/Resolving]
  - Gait disturbance [Recovering/Resolving]
  - Pain [Unknown]
  - Heart rate irregular [Unknown]
  - Grip strength decreased [Unknown]
  - Asthenia [Unknown]
  - Hypotension [Unknown]
